FAERS Safety Report 5832756-5 (Version None)
Quarter: 2008Q3

REPORT INFORMATION
  Report Type: 
  Country: None (occurrence: None)
  Receive Date: 20080804
  Receipt Date: 20080724
  Transmission Date: 20090109
  Serious: Yes (Other)
  Sender: FDA-Public Use
  Company Number: DK-JNJFOC-20080703563

PATIENT
  Sex: Male
  Weight: 100 kg

DRUGS (4)
  1. REMICADE [Suspect]
     Indication: PSORIATIC ARTHROPATHY
     Route: 042
  2. IBUMETIN [Concomitant]
  3. METOJECT [Concomitant]
  4. SELOZOK [Concomitant]

REACTIONS (1)
  - PARKINSON'S DISEASE [None]
